FAERS Safety Report 8062092-0 (Version None)
Quarter: 2012Q1

REPORT INFORMATION
  Report Type: 
  Country: None (occurrence: None)
  Receive Date: 20120123
  Receipt Date: 20120109
  Transmission Date: 20120608
  Serious: Yes (Other)
  Sender: FDA-Public Use
  Company Number: US-PFIZER INC-2012009652

PATIENT
  Sex: Male
  Weight: 86.168 kg

DRUGS (2)
  1. DETROL LA [Suspect]
     Indication: URINARY INCONTINENCE
     Dosage: 4 MG, 1X/DAY
  2. SYNTHROID [Concomitant]
     Indication: THYROID DISORDER
     Dosage: 125 UG, 1X/DAY
     Route: 048

REACTIONS (6)
  - HAEMANGIOMA OF LIVER [None]
  - BLOOD URINE PRESENT [None]
  - BLADDER DIVERTICULUM [None]
  - RENAL CYST [None]
  - DRUG EFFECT DECREASED [None]
  - PELVIC DISCOMFORT [None]
